FAERS Safety Report 4497068-3 (Version None)
Quarter: 2004Q4

REPORT INFORMATION
  Report Type: 
  Country: None (occurrence: None)
  Receive Date: 20041110
  Receipt Date: 20041028
  Transmission Date: 20050328
  Serious: Yes (Other)
  Sender: FDA-Public Use
  Company Number: DE-JNJFOC-20041008507

PATIENT
  Age: 25 Year

DRUGS (1)
  1. REMICADE [Suspect]
     Indication: CROHN'S DISEASE
     Dosage: HAS BEEN TREATED FOR 2 YEARS.
     Route: 042

REACTIONS (1)
  - CARDIAC FAILURE [None]
